FAERS Safety Report 10434695 (Version 1)
Quarter: 2014Q2

REPORT INFORMATION
  Report Type: Spontaneous
  Country: US (occurrence: None)
  Receive Date: 20140530
  Receipt Date: 20140530
  Transmission Date: 20141212
  Serious: Yes (Hospitalization)
  Sender: FDA-Public Use
  Company Number: 2012031064

PATIENT
  Age: 38 Year
  Sex: Female
  Weight: 65.77 kg

DRUGS (18)
  1. HIZENTRA (IMMUNOGLOBULIN HUMAN NORMAL) [Suspect]
     Indication: HYPOGAMMAGLOBULINAEMIA
     Dosage: IX/WEEK, 2 G (10 ML) EVERY WEEK, 4 SITES OVER 70 MINUTES SUBCUTANEOUS), (SUBCUTANEOUS), (), (10 G LX/WEEK, VIA 4 SITES OVER 1-2 HOURS SUBCUTANEOUS), (10 G LX/WEEK, VIA 4 SITES OVER 1-2 HOURS SUBCUTANEOUS)
     Route: 058
     Dates: start: 20111103
  2. HIZENTRA (IMMUNOGLOBULIN HUMAN NORMAL) [Suspect]
     Indication: ASTHMA
     Dosage: IX/WEEK, 2 G (10 ML) EVERY WEEK, 4 SITES OVER 70 MINUTES SUBCUTANEOUS), (SUBCUTANEOUS), (), (10 G LX/WEEK, VIA 4 SITES OVER 1-2 HOURS SUBCUTANEOUS), (10 G LX/WEEK, VIA 4 SITES OVER 1-2 HOURS SUBCUTANEOUS)
     Route: 058
     Dates: start: 20111103
  3. ADVAIR DISKUS [Concomitant]
  4. THEOPHYLLINE (THEOPHYLLINE) [Concomitant]
  5. DARVOCET-N (PROPACET) [Concomitant]
  6. SINGULAIR (MONTELUKAST) [Concomitant]
  7. SIMVASTATIN (SIMVASTATIN) [Concomitant]
  8. PROAIR HFA (PROCATEROL HYDROCHLORIDE) [Concomitant]
  9. ACIDOPHILUS (LACTOBACILLUS ACIDOPHILUS) [Concomitant]
  10. DUONEB (COMBIVENT) [Concomitant]
  11. XOLAIR (OMALIZUMAB) [Concomitant]
  12. CALCIUM W/D (CALCIUM) [Concomitant]
  13. OMEPRAZOLE (OMEPRAZOLE) [Concomitant]
  14. SYNTHROID (LEVOTHYROXINE SODIUM) [Concomitant]
  15. DIPHENHYDRAMINE (DIPHENHYDRAMINE) [Concomitant]
  16. EPI-PEN AUTOINJECTOR (EPINEPHRINE) [Concomitant]
  17. L-M-X (LIDOCAINE) [Concomitant]
  18. LOPRESSOR (METOPROLOL TARTRATE) [Concomitant]

REACTIONS (5)
  - Nausea [None]
  - Vomiting [None]
  - Diarrhoea [None]
  - Infusion site erythema [None]
  - Infusion site swelling [None]
